FAERS Safety Report 24342290 (Version 3)
Quarter: 2024Q4

REPORT INFORMATION
  Report Type: Spontaneous
  Country: NL (occurrence: NL)
  Receive Date: 20240920
  Receipt Date: 20241028
  Transmission Date: 20250115
  Serious: Yes (Hospitalization)
  Sender: ACCORD
  Company Number: NL-Accord-446535

PATIENT
  Age: 63 Year
  Sex: Female
  Weight: 63.5 kg

DRUGS (15)
  1. ETOPOSIDE [Suspect]
     Active Substance: ETOPOSIDE
     Indication: Small cell lung cancer limited stage
     Dosage: Q3W; IV DRIP
     Route: 042
     Dates: start: 20240610, end: 20240821
  2. CISPLATIN [Suspect]
     Active Substance: CISPLATIN
     Indication: Small cell lung cancer limited stage
     Dosage: Q3W
     Route: 042
     Dates: start: 20240610, end: 20240819
  3. LEVOTHYROXINE [Concomitant]
     Active Substance: LEVOTHYROXINE
     Indication: Hypothyroidism
     Dosage: 112.5UG, ONCE DAILY
     Route: 048
     Dates: start: 20210521
  4. ROSUVASTATIN [Concomitant]
     Active Substance: ROSUVASTATIN
     Indication: Hypercholesterolaemia
     Dosage: 40MG, ONCE DAILY
     Route: 048
     Dates: start: 20220523
  5. METFORMIN HYDROCHLORIDE [Concomitant]
     Active Substance: METFORMIN HYDROCHLORIDE
     Indication: Type 2 diabetes mellitus
     Dosage: 500MG, ONCE DAILY
     Route: 048
     Dates: start: 20240306
  6. ONDANSETRON [Concomitant]
     Active Substance: ONDANSETRON
     Indication: Nausea
     Dosage: 8MG, TWICE A DAY (ON DAY 1 OF EACH CYCLE)
     Route: 048
     Dates: start: 20240610
  7. POLYETHYLENE GLYCOLS [Concomitant]
     Active Substance: POLYETHYLENE GLYCOLS
     Indication: Constipation
     Dosage: 1 SACHET, AS NEEDED (PRN)
     Route: 048
     Dates: start: 20240610
  8. METOCLOPRAMIDE [Concomitant]
     Active Substance: METOCLOPRAMIDE
     Indication: Nausea
     Dosage: 10MG, PRN
     Route: 048
     Dates: start: 20240610
  9. POTASSIUM CHLORIDE [Concomitant]
     Active Substance: POTASSIUM CHLORIDE
     Indication: Hypokalaemia
     Dosage: 60 MMOL, 63 ML A HOUR
     Route: 042
     Dates: start: 20240801, end: 20240813
  10. GRANISETRON [Concomitant]
     Active Substance: GRANISETRON
     Indication: Nausea
     Dosage: 3.1MG EVERY 24 HOURS, ONCE EVERY 7 DAYS
     Route: 062
     Dates: start: 20240730
  11. SUCRALFAAT [Concomitant]
     Indication: Nausea
     Dosage: 5ML, THREE TIMES DAILY (TID)
     Route: 048
     Dates: start: 20240730
  12. PRIMPERAN [Concomitant]
     Active Substance: METOCLOPRAMIDE HYDROCHLORIDE
     Indication: Nausea
     Dosage: 10MG, PRN
     Route: 054
     Dates: start: 20240730
  13. MAGNESIUM GLUCONATE [Concomitant]
     Active Substance: MAGNESIUM GLUCONATE
     Dosage: 500 MG
     Route: 048
     Dates: start: 20240808, end: 20240813
  14. SODIUM CHLORIDE [Concomitant]
     Active Substance: SODIUM CHLORIDE
     Indication: Nausea
     Dosage: 1000ML, PRN
     Route: 042
     Dates: start: 20240801, end: 20240813
  15. POTASSIUM CHLORIDE [Concomitant]
     Active Substance: POTASSIUM CHLORIDE
     Indication: Hypokalaemia
     Dosage: 600 MG
     Route: 048
     Dates: start: 20240816

REACTIONS (2)
  - Acute kidney injury [Recovered/Resolved]
  - Vomiting [Recovered/Resolved]

NARRATIVE: CASE EVENT DATE: 20240727
